FAERS Safety Report 24041644 (Version 1)
Quarter: 2024Q3

REPORT INFORMATION
  Report Type: Report from Study
  Country: ES (occurrence: None)
  Receive Date: 20240702
  Receipt Date: 20240702
  Transmission Date: 20241016
  Serious: Yes (Other)
  Sender: ASTRAZENECA
  Company Number: 2024A146845

PATIENT
  Age: 55 Year
  Sex: Male

DRUGS (1)
  1. DURVALUMAB [Suspect]
     Active Substance: DURVALUMAB
     Route: 042
     Dates: start: 20240117, end: 20240514

REACTIONS (3)
  - Immunotoxicity [Unknown]
  - Pneumonitis [Unknown]
  - Gastrointestinal disorder [Unknown]
